FAERS Safety Report 4974947-1 (Version None)
Quarter: 2006Q2

REPORT INFORMATION
  Report Type: 
  Country: None (occurrence: None)
  Receive Date: 20060418
  Receipt Date: 20060403
  Transmission Date: 20061013
  Serious: Yes (Death, Hospitalization)
  Sender: FDA-Public Use
  Company Number: US-AMGEN-STX174839

PATIENT
  Sex: Female

DRUGS (1)
  1. ENBREL [Suspect]
     Indication: RHEUMATOID ARTHRITIS
     Dates: start: 19990101

REACTIONS (5)
  - CYSTITIS [None]
  - DIVERTICULITIS [None]
  - KIDNEY INFECTION [None]
  - PNEUMONIA [None]
  - RESPIRATORY FAILURE [None]
